FAERS Safety Report 4561226-X (Version None)
Quarter: 2005Q1

REPORT INFORMATION
  Report Type: 
  Country: None (occurrence: None)
  Receive Date: 20050124
  Receipt Date: 20050120
  Transmission Date: 20050727
  Serious: Yes (Hospitalization)
  Sender: FDA-Public Use
  Company Number: 200410581BYL

PATIENT
  Age: 62 Year
  Sex: Male
  Weight: 85 kg

DRUGS (6)
  1. ASPIRIN [Suspect]
     Indication: ANTIPLATELET THERAPY
     Dosage: 100 MG QD ORAL
     Route: 048
     Dates: start: 20040820, end: 20041025
  2. EXCEGRAN (ZONISAMIDE) [Suspect]
     Indication: EPILEPSY
     Dosage: 200 MG TOTAL DAILY ORAL
     Route: 048
     Dates: start: 20040901, end: 20041025
  3. PAMILCON [Concomitant]
  4. KAMAG G [Concomitant]
  5. SENNARIDE [Concomitant]
  6. UNASYN [Concomitant]

REACTIONS (2)
  - FATIGUE [None]
  - WHITE BLOOD CELL COUNT DECREASED [None]
